FAERS Safety Report 6058449-X (Version None)
Quarter: 2009Q1

REPORT INFORMATION
  Report Type: 
  Country: None (occurrence: None)
  Receive Date: 20090130
  Receipt Date: 20090123
  Transmission Date: 20090719
  Serious: Yes (Hospitalization)
  Sender: FDA-Public Use
  Company Number: US-BIOGENIDEC-2008BI014760

PATIENT
  Age: 54 Year
  Sex: Female
  Weight: 84 kg

DRUGS (3)
  1. AVONEX [Suspect]
     Indication: MULTIPLE SCLEROSIS
     Route: 030
     Dates: start: 20000201, end: 20030101
  2. AVONEX [Suspect]
     Route: 030
     Dates: start: 20030101, end: 20080401
  3. AVONEX [Suspect]
     Route: 030
     Dates: start: 20080401

REACTIONS (3)
  - BODY TEMPERATURE INCREASED [None]
  - HYPERGLYCAEMIA [None]
  - MULTIPLE SCLEROSIS RELAPSE [None]
